FAERS Safety Report 19738456 (Version 2)
Quarter: 2021Q3

REPORT INFORMATION
  Report Type: Report from Study
  Country: US (occurrence: US)
  Receive Date: 20210823
  Receipt Date: 20210827
  Transmission Date: 20211014
  Serious: No
  Sender: FDA-Public Use
  Company Number: NVSC2021US163772

PATIENT
  Age: 57 Year
  Sex: Male

DRUGS (1)
  1. TREPROSTINIL. [Suspect]
     Active Substance: TREPROSTINIL
     Indication: PULMONARY ARTERIAL HYPERTENSION
     Dosage: 46 UNK, CONT(NG/KG/MIN)
     Route: 042
     Dates: start: 201901

REACTIONS (2)
  - Dyspnoea [Unknown]
  - Lung infiltration [Unknown]

NARRATIVE: CASE EVENT DATE: 20210715
